FAERS Safety Report 6863468-7 (Version None)
Quarter: 2010Q3

REPORT INFORMATION
  Report Type: 
  Country: None (occurrence: None)
  Receive Date: 20100719
  Receipt Date: 20100706
  Transmission Date: 20110219
  Serious: Yes (Other)
  Sender: FDA-Public Use
  Company Number: DSA_43465_2010

PATIENT
  Sex: Male
  Weight: 87.5442 kg

DRUGS (4)
  1. CARDIZEM [Suspect]
     Indication: SINUS ARRHYTHMIA
     Dosage: (DF), (DF), (DF), (DF), I MONTH UNTIL NOT CONTINUING
     Dates: start: 20050101
  2. COUMADIN [Concomitant]
  3. CRESTOR [Concomitant]
  4. VITAMIN A [Concomitant]

REACTIONS (3)
  - BLOOD CHOLESTEROL INCREASED [None]
  - BRADYCARDIA [None]
  - JOINT SWELLING [None]
